FAERS Safety Report 6447396-7 (Version None)
Quarter: 2009Q4

REPORT INFORMATION
  Report Type: 
  Country: None (occurrence: None)
  Receive Date: 20091116
  Receipt Date: 20091110
  Transmission Date: 20100525
  Serious: Yes (Death, Hospitalization)
  Sender: FDA-Public Use
  Company Number: 2007SP022040

PATIENT
  Age: 7 Year
  Sex: Female
  Weight: 37 kg

DRUGS (16)
  1. TEMODAL [Suspect]
     Indication: BRAIN STEM GLIOMA
     Dosage: 150 MG/M2; QD; PO
     Route: 048
     Dates: start: 20061113, end: 20061117
  2. TEMODAL [Suspect]
     Indication: BRAIN STEM GLIOMA
     Dosage: 150 MG/M2; QD; PO
     Route: 048
     Dates: start: 20061211, end: 20061215
  3. TEMODAL [Suspect]
     Indication: BRAIN STEM GLIOMA
     Dosage: 150 MG/M2; QD; PO
     Route: 048
     Dates: start: 20070115, end: 20070119
  4. TEMODAL [Suspect]
     Indication: BRAIN STEM GLIOMA
     Dosage: 150 MG/M2; QD; PO
     Route: 048
     Dates: start: 20070213, end: 20070217
  5. TEMODAL [Suspect]
     Indication: BRAIN STEM GLIOMA
     Dosage: 150 MG/M2; QD; PO
     Route: 048
     Dates: start: 20070313, end: 20070317
  6. TEMODAL [Suspect]
     Indication: BRAIN STEM GLIOMA
     Dosage: 150 MG/M2; QD; PO
     Route: 048
     Dates: start: 20070413, end: 20070417
  7. BETAMETHASONE [Suspect]
     Indication: PROPHYLAXIS
     Dosage: ; PO, ; IV
     Dates: end: 20070501
  8. BETAMETHASONE [Suspect]
     Indication: PROPHYLAXIS
     Dosage: ; PO, ; IV
     Dates: start: 20070502
  9. GLEEVEC [Suspect]
     Indication: BRAIN STEM GLIOMA
     Dosage: ; PO
     Route: 048
     Dates: end: 20070501
  10. BAKTAR [Concomitant]
  11. GASTER D [Concomitant]
  12. ERYTHROCIN LACTOBIONATE [Concomitant]
  13. NAUZELIN [Concomitant]
  14. BONALON [Concomitant]
  15. GASTER [Concomitant]
  16. CARBENIN [Concomitant]

REACTIONS (8)
  - BRAIN STEM GLIOMA [None]
  - DISEASE PROGRESSION [None]
  - HYPERGLYCAEMIA [None]
  - HYPERLIPIDAEMIA [None]
  - LYMPHOPENIA [None]
  - PANCREATITIS ACUTE [None]
  - PYREXIA [None]
  - TUMOUR HAEMORRHAGE [None]
